FAERS Safety Report 5431772-5 (Version None)
Quarter: 2007Q3

REPORT INFORMATION
  Report Type: 
  Country: None (occurrence: None)
  Receive Date: 20070830
  Receipt Date: 20070820
  Transmission Date: 20080115
  Serious: Yes (Hospitalization)
  Sender: FDA-Public Use
  Company Number: US-SHR-US-2007-016682

PATIENT
  Age: 55 Year
  Sex: Female
  Weight: 106.58 kg

DRUGS (5)
  1. BETASERON [Suspect]
     Indication: RELAPSING-REMITTING MULTIPLE SCLEROSIS
     Dosage: 8 MIU, EVERY 2D
     Route: 058
     Dates: start: 19920101
  2. LEVOTHYROXINE SODIUM [Concomitant]
     Dosage: 100 A?G/DAY, UNK
     Dates: start: 19990101
  3. DETROL                                  /USA/ [Concomitant]
     Dosage: 3 MG/D, UNK
     Dates: start: 19990101
  4. QUAZIUM [Concomitant]
     Dates: start: 19960101
  5. ILLEGIBLE DRUG NAME [Concomitant]
     Dosage: UNK, UNK
     Dates: start: 19860101

REACTIONS (4)
  - INTERVERTEBRAL DISC DISORDER [None]
  - MOBILITY DECREASED [None]
  - MUSCLE SPASMS [None]
  - MUSCULOSKELETAL STIFFNESS [None]
